FAERS Safety Report 6531829-1 (Version None)
Quarter: 2010Q1

REPORT INFORMATION
  Report Type: 
  Country: None (occurrence: None)
  Receive Date: 20100108
  Receipt Date: 20091231
  Transmission Date: 20100710
  Serious: Yes (Life-Threatening, Hospitalization)
  Sender: FDA-Public Use
  Company Number: US-BRACCO-003877

PATIENT
  Age: 42 Year
  Sex: Male

DRUGS (2)
  1. MULTIHANCE [Suspect]
     Indication: PERONEAL NERVE PALSY
     Route: 042
     Dates: start: 20091229, end: 20091229
  2. MULTIHANCE [Suspect]
     Indication: NUCLEAR MAGNETIC RESONANCE IMAGING
     Route: 042
     Dates: start: 20091229, end: 20091229

REACTIONS (2)
  - LOSS OF CONSCIOUSNESS [None]
  - RESPIRATORY ARREST [None]
